FAERS Safety Report 14303868 (Version 1)
Quarter: 2017Q4

REPORT INFORMATION
  Report Type: Spontaneous
  Country: US (occurrence: US)
  Receive Date: 20171219
  Receipt Date: 20171219
  Transmission Date: 20180321
  Serious: Yes (Death, Other)
  Sender: FDA-Public Use
  Company Number: US-OTSUKA-DJ20083390

PATIENT
  Age: 81 Year
  Sex: Male

DRUGS (2)
  1. ABILIFY [Suspect]
     Active Substance: ARIPIPRAZOLE
     Indication: SENILE PSYCHOSIS
  2. ABILIFY [Suspect]
     Active Substance: ARIPIPRAZOLE
     Indication: PARANOIA
     Dosage: 5 MG, UNK
     Route: 048
     Dates: start: 20080918

REACTIONS (2)
  - Death [Fatal]
  - Cellulitis [Unknown]

NARRATIVE: CASE EVENT DATE: 20080921
